FAERS Safety Report 23477667 (Version 1)
Quarter: 2024Q1

REPORT INFORMATION
  Report Type: Report from Study
  Country: US (occurrence: US)
  Receive Date: 20240204
  Receipt Date: 20240204
  Transmission Date: 20240410
  Serious: No
  Sender: FDA-Public Use
  Company Number: US-EXELIXIS-CABO-23066716

PATIENT
  Age: 55 Year
  Sex: Male

DRUGS (11)
  1. CABOMETYX [Suspect]
     Active Substance: CABOZANTINIB S-MALATE
     Indication: Renal cell carcinoma
     Dosage: 20 MG, QD
     Dates: start: 20230717
  2. OPDIVO [Suspect]
     Active Substance: NIVOLUMAB
     Indication: Renal cell carcinoma
     Dosage: UNK, Q4WEEKS
     Dates: start: 20230717
  3. ELIQUIS [Concomitant]
     Active Substance: APIXABAN
  4. OLMESARTAN [Concomitant]
     Active Substance: OLMESARTAN
  5. CLONIDINE [Concomitant]
     Active Substance: CLONIDINE
  6. LABETALOL [Concomitant]
     Active Substance: LABETALOL\LABETALOL HYDROCHLORIDE
  7. TRULICITY [Concomitant]
     Active Substance: DULAGLUTIDE
  8. GLIMEPIRIDE [Concomitant]
     Active Substance: GLIMEPIRIDE
  9. ATORVASTATIN [Concomitant]
     Active Substance: ATORVASTATIN
  10. AMLODIPINE [Concomitant]
     Active Substance: AMLODIPINE BESYLATE
  11. MINOXIDIL [Concomitant]
     Active Substance: MINOXIDIL

REACTIONS (5)
  - Hepatic enzyme increased [Not Recovered/Not Resolved]
  - Pruritus [Unknown]
  - Fatigue [Not Recovered/Not Resolved]
  - Burning sensation [Unknown]
  - Back pain [Unknown]

NARRATIVE: CASE EVENT DATE: 20230815
